FAERS Safety Report 16805316 (Version 1)
Quarter: 2019Q4

REPORT INFORMATION
  Report Type: Spontaneous
  Country: US (occurrence: US)
  Receive Date: 20190913
  Receipt Date: 20190913
  Transmission Date: 20200122
  Serious: Yes (Other)
  Sender: FDA-Public Use
  Company Number: None

PATIENT
  Age: 80 Year
  Sex: Female

DRUGS (9)
  1. BUMETADINE [Concomitant]
     Active Substance: BUMETANIDE
  2. ALLOPURINOL. [Concomitant]
     Active Substance: ALLOPURINOL
  3. SPIRONOLACT [Concomitant]
     Active Substance: SPIRONOLACTONE
  4. LYRICA [Concomitant]
     Active Substance: PREGABALIN
  5. TORSEMIDE. [Concomitant]
     Active Substance: TORSEMIDE
  6. TADALAFIL. [Suspect]
     Active Substance: TADALAFIL
     Indication: HYPERTENSION
     Route: 048
     Dates: start: 20181015
  7. LEVOTHYROXINE. [Concomitant]
     Active Substance: LEVOTHYROXINE
  8. SODIUM CHLOR [Concomitant]
     Active Substance: SODIUM CHLORIDE
  9. FLUOXETINE [Concomitant]
     Active Substance: FLUOXETINE HYDROCHLORIDE

REACTIONS (1)
  - Spinal cord neoplasm [None]

NARRATIVE: CASE EVENT DATE: 20190901
